FAERS Safety Report 7336010-4 (Version None)
Quarter: 2011Q1

REPORT INFORMATION
  Report Type: 
  Country: None (occurrence: None)
  Receive Date: 20110307
  Receipt Date: 20110225
  Transmission Date: 20110831
  Serious: Yes (Hospitalization)
  Sender: FDA-Public Use
  Company Number: BR-ASTRAZENECA-2011SE10921

PATIENT
  Age: 68 Year
  Sex: Female
  Weight: 66 kg

DRUGS (3)
  1. ARTROLIV [Concomitant]
     Route: 048
     Dates: start: 19990101
  2. ARIMIDEX [Suspect]
     Indication: BREAST CANCER
     Route: 048
     Dates: start: 20010101, end: 20070101
  3. EUTHYROX [Concomitant]
     Route: 048
     Dates: start: 19990101

REACTIONS (1)
  - PANCREATIC CARCINOMA [None]
